FAERS Safety Report 18576481 (Version 1)
Quarter: 2020Q4

REPORT INFORMATION
  Report Type: Spontaneous
  Country: CZ (occurrence: CZ)
  Receive Date: 20201203
  Receipt Date: 20201203
  Transmission Date: 20210114
  Serious: Yes (Hospitalization)
  Sender: FDA-Public Use
  Company Number: CZ-SA-2020SA337952

PATIENT

DRUGS (12)
  1. LANZUL [Concomitant]
     Active Substance: LANSOPRAZOLE
     Dosage: UNK UNK, QD
  2. TONARSSA [Concomitant]
     Active Substance: AMLODIPINE BESYLATE\PERINDOPRIL ERBUMINE
     Dosage: UNK UNK, BID
  3. VASCOCARDIN [Concomitant]
     Dosage: UNK UNK, BID
  4. NAKOM [Concomitant]
     Active Substance: CARBIDOPA\LEVODOPA
     Dosage: UNK UNK, QID
  5. ACTRAPID [Concomitant]
     Active Substance: INSULIN HUMAN
     Dosage: UNK UNK, TID
  6. COMTAN [Concomitant]
     Active Substance: ENTACAPONE
     Dosage: UNK UNK, QID
  7. LANTUS [Suspect]
     Active Substance: INSULIN GLARGINE
     Dosage: 12 U. AT 10PM
  8. STADAMET [Suspect]
     Active Substance: METFORMIN HYDROCHLORIDE
     Dosage: UNK UNK, BID
  9. STADAMET [Suspect]
     Active Substance: METFORMIN HYDROCHLORIDE
     Dosage: 500 MG
  10. TENAXUM [Concomitant]
     Active Substance: RILMENIDINE
     Dosage: UNK UNK, BID
  11. STACYL [Concomitant]
     Dosage: UNK UNK, QD
  12. ATORVASTATIN [Concomitant]
     Active Substance: ATORVASTATIN
     Dosage: UNK UNK, TID

REACTIONS (2)
  - Fall [Recovering/Resolving]
  - Hypoglycaemia [Recovering/Resolving]
